FAERS Safety Report 19602727 (Version 8)
Quarter: 2021Q3

REPORT INFORMATION
  Report Type: Report from Study
  Country: JP (occurrence: JP)
  Receive Date: 20210723
  Receipt Date: 20210924
  Transmission Date: 20211014
  Serious: Yes (Hospitalization)
  Sender: FDA-Public Use
  Company Number: JP-EISAI MEDICAL RESEARCH-EC-2021-096566

PATIENT
  Age: 62 Year
  Sex: Male
  Weight: 43 kg

DRUGS (17)
  1. PEMBROLIZUMAB. [Suspect]
     Active Substance: PEMBROLIZUMAB
     Indication: NON-SMALL CELL LUNG CANCER METASTATIC
     Route: 041
     Dates: start: 20210317, end: 20210611
  2. PEMBROLIZUMAB. [Suspect]
     Active Substance: PEMBROLIZUMAB
     Route: 041
     Dates: start: 20210917
  3. PEMETREXED. [Suspect]
     Active Substance: PEMETREXED
     Route: 041
     Dates: start: 20210630, end: 20210630
  4. PANVITAN [Concomitant]
     Active Substance: VITAMINS
     Dates: start: 20210219
  5. DEXART [Concomitant]
     Active Substance: DEXAMETHASONE SODIUM PHOSPHATE
     Dates: start: 20210630, end: 20210630
  6. PEMBROLIZUMAB. [Suspect]
     Active Substance: PEMBROLIZUMAB
     Route: 041
     Dates: start: 20210630, end: 20210630
  7. CALONAL [Concomitant]
     Active Substance: ACETAMINOPHEN
     Dates: start: 20210221
  8. MAGMITT [Concomitant]
     Active Substance: MAGNESIUM OXIDE
     Dates: start: 20210318
  9. METOCLOPRAMIDE. [Concomitant]
     Active Substance: METOCLOPRAMIDE
     Dates: start: 20210322
  10. ALOXI [Concomitant]
     Active Substance: PALONOSETRON HYDROCHLORIDE
     Dates: start: 20210630, end: 20210630
  11. PEMETREXED. [Suspect]
     Active Substance: PEMETREXED
     Indication: NON-SMALL CELL LUNG CANCER METASTATIC
     Route: 041
     Dates: start: 20210317, end: 20210611
  12. SENNOSIDES. [Concomitant]
     Active Substance: SENNOSIDES
     Dates: start: 20210318
  13. AMLODIPINE [Concomitant]
     Active Substance: AMLODIPINE BESYLATE
     Dates: start: 200001
  14. THYRADIN S [Concomitant]
     Active Substance: LEVOTHYROXINE SODIUM
     Dates: start: 20210518
  15. LENVATINIB [Suspect]
     Active Substance: LENVATINIB
     Indication: NON-SMALL CELL LUNG CANCER METASTATIC
     Route: 048
     Dates: start: 20210317
  16. CARBOPLATIN. [Concomitant]
     Active Substance: CARBOPLATIN
     Dates: start: 20210317, end: 20210519
  17. LOXOPROFEN [Concomitant]
     Active Substance: LOXOPROFEN
     Dates: start: 20210219

REACTIONS (1)
  - Appendicitis [Recovering/Resolving]

NARRATIVE: CASE EVENT DATE: 20210714
